FAERS Safety Report 7238981-3 (Version None)
Quarter: 2011Q1

REPORT INFORMATION
  Report Type: 
  Country: None (occurrence: None)
  Receive Date: 20110119
  Receipt Date: 20110119
  Transmission Date: 20110831
  Serious: Yes (Hospitalization)
  Sender: FDA-Public Use
  Company Number: None

PATIENT
  Sex: Male
  Weight: 98.7934 kg

DRUGS (2)
  1. AZACITIDINE [Suspect]
     Indication: ACUTE MYELOID LEUKAEMIA
     Dosage: 25 MG/M2 D1-D5
     Dates: start: 20101215, end: 20101219
  2. LENALIDOMIDE [Suspect]
     Indication: ACUTE MYELOID LEUKAEMIA
     Dosage: 50 MG PO DAILY D1-28
     Route: 048
     Dates: start: 20101215

REACTIONS (5)
  - OEDEMA [None]
  - PULMONARY EMBOLISM [None]
  - CONSTIPATION [None]
  - TINEA CRURIS [None]
  - RENAL FAILURE ACUTE [None]
